FAERS Safety Report 21907549 (Version 1)
Quarter: 2023Q1

REPORT INFORMATION
  Report Type: Spontaneous
  Country: US (occurrence: US)
  Receive Date: 20230125
  Receipt Date: 20230125
  Transmission Date: 20230418
  Serious: No
  Sender: FDA-Public Use
  Company Number: ENDG22-04882

PATIENT

DRUGS (2)
  1. ADRENALIN [Suspect]
     Active Substance: EPINEPHRINE
     Indication: Procedural pain
     Dosage: 0.5 MG, SINGLE
     Route: 050
     Dates: start: 20220727, end: 20220727
  2. ADRENALIN [Suspect]
     Active Substance: EPINEPHRINE
     Indication: Post procedural inflammation

REACTIONS (2)
  - Hypertension [Recovered/Resolved]
  - Off label use [Recovered/Resolved]

NARRATIVE: CASE EVENT DATE: 20220727
